FAERS Safety Report 4384519-8 (Version None)
Quarter: 2004Q2

REPORT INFORMATION
  Report Type: 
  Country: None (occurrence: None)
  Receive Date: 20040610
  Receipt Date: 20040225
  Transmission Date: 20050107
  Serious: No
  Sender: FDA-Public Use
  Company Number: US-JNJFOC-20040205697

PATIENT
  Age: 65 Year
  Sex: Male
  Weight: 90 kg

DRUGS (5)
  1. NATRECOR [Suspect]
     Indication: CARDIAC FAILURE CONGESTIVE
     Dosage: 0.01 UG/KG/MIN, INTRAVENOUS
     Route: 042
     Dates: start: 20040211
  2. INSULIN [Suspect]
     Indication: DIABETES MELLITUS
  3. AMIODARONE HCL [Concomitant]
  4. FUROSEMIDE [Concomitant]
  5. MILRINONE (MILRINONE) [Concomitant]

REACTIONS (1)
  - HYPOGLYCAEMIA [None]
